FAERS Safety Report 4526404-4 (Version None)
Quarter: 2004Q4

REPORT INFORMATION
  Report Type: 
  Country: None (occurrence: None)
  Receive Date: 20041213
  Receipt Date: 20041129
  Transmission Date: 20050328
  Serious: Yes (Hospitalization)
  Sender: FDA-Public Use
  Company Number: 2004-BP-12063NB

PATIENT
  Age: 71 Year
  Sex: Female

DRUGS (2)
  1. MICARDIS CAPSULES (TELMISARTIN) (KA) [Suspect]
     Indication: HYPERTENSION
     Dosage: 20 MG (NR); PO
     Route: 048
     Dates: start: 20041104, end: 20041106
  2. ASPIRIN [Suspect]
     Indication: CEREBRAL INFARCTION
     Dosage: 100 MG (NR); PO
     Route: 048
     Dates: start: 20041104, end: 20041106

REACTIONS (1)
  - HEPATIC FUNCTION ABNORMAL [None]
